FAERS Safety Report 25808768 (Version 1)
Quarter: 2025Q3

REPORT INFORMATION
  Report Type: Report from Study
  Country: US (occurrence: US)
  Receive Date: 20250916
  Receipt Date: 20250916
  Transmission Date: 20251021
  Serious: Yes (Other)
  Sender: ABBVIE
  Company Number: US-ABBVIE-6460377

PATIENT
  Sex: Female

DRUGS (1)
  1. SKYRIZI [Suspect]
     Active Substance: RISANKIZUMAB-RZAA
     Indication: Psoriasis
     Route: 058
     Dates: start: 20230323

REACTIONS (6)
  - Wrist fracture [Unknown]
  - Fall [Unknown]
  - Upper limb fracture [Unknown]
  - Craniofacial fracture [Unknown]
  - Haematoma [Unknown]
  - Diabetes mellitus [Unknown]
